FAERS Safety Report 8486884-9 (Version None)
Quarter: 2012Q3

REPORT INFORMATION
  Report Type: 
  Country: None (occurrence: None)
  Receive Date: 20120704
  Receipt Date: 20120625
  Transmission Date: 20120928
  Serious: Yes (Hospitalization)
  Sender: FDA-Public Use
  Company Number: AU-BRISTOL-MYERS SQUIBB COMPANY-16710345

PATIENT
  Age: 74 Year
  Sex: Male
  Weight: 131 kg

DRUGS (14)
  1. NOVOLOG MIX 70/30 [Concomitant]
  2. ALLOPURINOL [Concomitant]
     Indication: GOUT
  3. MICARDIS [Concomitant]
     Indication: VOMITING
  4. PACLITAXEL [Suspect]
     Indication: GASTRIC CANCER
     Dosage: DAY 1 8 AND 15 EVEREY 4 WEEK CYCLE LAST DOSE ON 14JUN2012
     Route: 042
     Dates: start: 20120412
  5. PANAMAX [Concomitant]
     Indication: NAUSEA
  6. PANAMAX [Concomitant]
     Indication: VOMITING
  7. MICARDIS [Concomitant]
     Indication: NAUSEA
  8. MOTILIUM [Concomitant]
     Indication: NAUSEA
  9. LORAZEPAM [Concomitant]
     Indication: ANXIETY
  10. BISOPROLOL FUMARATE [Concomitant]
     Indication: NAUSEA
  11. BISOPROLOL FUMARATE [Concomitant]
     Indication: VOMITING
  12. FUROSEMIDE [Concomitant]
     Indication: ANXIETY
  13. ESOMEPRAZOLE [Concomitant]
     Indication: ANXIETY
  14. MOTILIUM [Concomitant]
     Indication: VOMITING

REACTIONS (1)
  - DYSPNOEA [None]
